FAERS Safety Report 4357566-X (Version None)
Quarter: 2004Q2

REPORT INFORMATION
  Report Type: 
  Country: None (occurrence: None)
  Receive Date: 20040510
  Receipt Date: 20040428
  Transmission Date: 20050107
  Serious: Yes (Death, Life-Threatening, Hospitalization, Other)
  Sender: FDA-Public Use
  Company Number: FR-JNJFOC-20030705386

PATIENT
  Age: 51 Year
  Sex: Male
  Weight: 85 kg

DRUGS (5)
  1. REMICADE [Suspect]
     Indication: ANKYLOSING SPONDYLITIS
     Dosage: 420 MG, 1 IN 1 DAY, INTRAVENOUS; 420 MG, 1 IN 1 DAY, INTRAVENOUS
     Route: 042
     Dates: start: 20030602, end: 20030602
  2. REMICADE [Suspect]
     Indication: ANKYLOSING SPONDYLITIS
     Dosage: 420 MG, 1 IN 1 DAY, INTRAVENOUS; 420 MG, 1 IN 1 DAY, INTRAVENOUS
     Route: 042
     Dates: start: 20030718, end: 20030718
  3. . [Concomitant]
  4. BUTAZOLIDIN [Concomitant]
  5. OMEPRAZOLE [Concomitant]

REACTIONS (2)
  - LUNG NEOPLASM MALIGNANT [None]
  - LYMPHADENOPATHY [None]
